FAERS Safety Report 14625153 (Version 2)
Quarter: 2018Q1

REPORT INFORMATION
  Report Type: Spontaneous
  Country: GB (occurrence: GB)
  Receive Date: 20180312
  Receipt Date: 20180314
  Transmission Date: 20180509
  Serious: Yes (Life-Threatening, Other)
  Sender: FDA-Public Use
  Company Number: GB-ASTELLAS-2018US008264

PATIENT
  Age: 56 Year
  Sex: Female

DRUGS (4)
  1. GANCICLOVIR. [Suspect]
     Active Substance: GANCICLOVIR
     Indication: CYTOMEGALOVIRUS VIRAEMIA
     Dosage: UNK UNK, UNKNOWN FREQ.
     Route: 042
  2. TACROLIMUS. [Suspect]
     Active Substance: TACROLIMUS
     Indication: LIVER TRANSPLANT
     Dosage: UNK UNK, UNKNOWN FREQ.
     Route: 065
  3. PREDNISOLONE. [Suspect]
     Active Substance: PREDNISOLONE
     Indication: LIVER TRANSPLANT
     Dosage: UNK UNK, UNKNOWN FREQ.
     Route: 065
  4. AZATHIOPRINE. [Suspect]
     Active Substance: AZATHIOPRINE
     Indication: LIVER TRANSPLANT
     Dosage: UNK UNK, UNKNOWN FREQ.
     Route: 065

REACTIONS (12)
  - Proctitis infectious [Recovered/Resolved]
  - Acute kidney injury [Recovering/Resolving]
  - Influenza [Recovered/Resolved]
  - Peritonitis [Recovering/Resolving]
  - Anal ulcer [Recovering/Resolving]
  - Cytomegalovirus viraemia [Recovered/Resolved]
  - Respiratory failure [Recovering/Resolving]
  - Neutropenic sepsis [Recovered/Resolved]
  - Escherichia sepsis [Recovered/Resolved]
  - Infection [Unknown]
  - Multiple organ dysfunction syndrome [Recovering/Resolving]
  - Bacteraemia [Recovered/Resolved]
